FAERS Safety Report 13509107 (Version 1)
Quarter: 2017Q2

REPORT INFORMATION
  Report Type: Spontaneous
  Country: AU (occurrence: AU)
  Receive Date: 20170503
  Receipt Date: 20170503
  Transmission Date: 20170830
  Serious: Yes (Hospitalization)
  Sender: FDA-Public Use
  Company Number: AU-ASTRAZENECA-2017SE45132

PATIENT
  Age: 15 Year
  Sex: Male
  Weight: 70 kg

DRUGS (9)
  1. QUETIAPINE. [Suspect]
     Active Substance: QUETIAPINE
     Route: 048
  2. QUETIAPINE. [Suspect]
     Active Substance: QUETIAPINE
     Route: 048
  3. RAMIPRIL. [Suspect]
     Active Substance: RAMIPRIL
     Dosage: 100.0MG ONCE/SINGLE ADMINISTRATION
     Route: 048
  4. AMLODIPINE [Suspect]
     Active Substance: AMLODIPINE BESYLATE
     Dosage: 290.0MG ONCE/SINGLE ADMINISTRATION
     Route: 048
  5. FLUOXETINE [Suspect]
     Active Substance: FLUOXETINE HYDROCHLORIDE
     Dosage: 560.0MG ONCE/SINGLE ADMINISTRATION
     Route: 048
  6. VENLAFAXINE [Suspect]
     Active Substance: VENLAFAXINE HYDROCHLORIDE
     Dosage: 1.05G ONCE/SINGLE ADMINISTRATION
     Route: 048
  7. DESVENLAFAXINE. [Suspect]
     Active Substance: DESVENLAFAXINE
     Dosage: 5.6G ONCE/SINGLE ADMINISTRATION
     Route: 048
  8. LITHIUM. [Suspect]
     Active Substance: LITHIUM
     Route: 048
  9. PROMETHAZINE [Suspect]
     Active Substance: PROMETHAZINE\PROMETHAZINE HYDROCHLORIDE
     Dosage: 500.0MG ONCE/SINGLE ADMINISTRATION
     Route: 048

REACTIONS (2)
  - Overdose [Recovered/Resolved]
  - Shock [Recovered/Resolved]
